FAERS Safety Report 13627225 (Version 1)
Quarter: 2017Q2

REPORT INFORMATION
  Report Type: Report from Study
  Country: ZA (occurrence: ZA)
  Receive Date: 20170608
  Receipt Date: 20170608
  Transmission Date: 20170830
  Serious: Yes (Death)
  Sender: FDA-Public Use
  Company Number: ZA-TEVA-775381ROM

PATIENT
  Age: 67 Year
  Sex: Male

DRUGS (2)
  1. PRAZOSIN. [Suspect]
     Active Substance: PRAZOSIN
     Route: 065
  2. AMLODIPINE [Suspect]
     Active Substance: AMLODIPINE BESYLATE
     Route: 065

REACTIONS (1)
  - Hypotension [Fatal]
